FAERS Safety Report 15665761 (Version 1)
Quarter: 2018Q4

REPORT INFORMATION
  Report Type: Spontaneous
  Country: GB (occurrence: GB)
  Receive Date: 20181128
  Receipt Date: 20181128
  Transmission Date: 20190205
  Serious: Yes (Other)
  Sender: FDA-Public Use
  Company Number: PHHY2018GB167079

PATIENT
  Age: 73 Year
  Sex: Male

DRUGS (2)
  1. GABAPENTIN. [Suspect]
     Active Substance: GABAPENTIN
     Indication: PRODUCT USED FOR UNKNOWN INDICATION
     Dosage: UNK
     Route: 065
  2. GABAPENTIN. [Suspect]
     Active Substance: GABAPENTIN
     Dosage: 2100 MG, DAILY (600MG IN THE MORNING, 600MG IN THE MIDDAY AND 900MG IN THE EVENING)
     Route: 065

REACTIONS (7)
  - Fatigue [Unknown]
  - Pain in extremity [Unknown]
  - Anger [Unknown]
  - Insomnia [Unknown]
  - Dizziness [Unknown]
  - Spinal pain [Unknown]
  - Depression [Unknown]
